FAERS Safety Report 5529408-8 (Version None)
Quarter: 2007Q4

REPORT INFORMATION
  Report Type: 
  Country: None (occurrence: None)
  Receive Date: 20071129
  Receipt Date: 20071120
  Transmission Date: 20080405
  Serious: Yes (Hospitalization)
  Sender: FDA-Public Use
  Company Number: JP-ASTRAZENECA-2007AP06971

PATIENT
  Age: 28207 Day
  Sex: Male
  Weight: 55 kg

DRUGS (10)
  1. CRESTOR [Suspect]
     Indication: HYPERLIPIDAEMIA
     Route: 048
     Dates: start: 20070329, end: 20070823
  2. BAYCARON [Concomitant]
     Indication: HYPERTENSION
     Route: 048
     Dates: start: 20041216
  3. NU-LOTAN [Concomitant]
     Indication: HYPERTENSION
     Route: 048
     Dates: start: 20041216
  4. MUCOSOLVAN [Concomitant]
     Indication: BRONCHITIS CHRONIC
     Route: 048
     Dates: start: 20041216
  5. THEO-DUR [Concomitant]
     Indication: BRONCHITIS CHRONIC
     Route: 048
     Dates: start: 20041216
  6. GASMOTIN [Concomitant]
     Indication: GASTRITIS
     Route: 048
     Dates: start: 20041216
  7. PULMICORT [Concomitant]
     Indication: ASTHMA
     Route: 055
     Dates: start: 20041216
  8. CLARITIN [Concomitant]
     Indication: RHINITIS ALLERGIC
     Route: 048
     Dates: start: 20050312
  9. ZYLORIC [Concomitant]
     Indication: HYPERURICAEMIA
     Route: 048
     Dates: start: 20070329
  10. UNKNOWN DRUG [Concomitant]
     Dosage: DOSE UNKNOWN
     Route: 065

REACTIONS (3)
  - ANOREXIA [None]
  - BRONCHITIS CHRONIC [None]
  - DYSGEUSIA [None]
